FAERS Safety Report 5674887-9 (Version None)
Quarter: 2008Q1

REPORT INFORMATION
  Report Type: 
  Country: None (occurrence: None)
  Receive Date: 20080320
  Receipt Date: 20080311
  Transmission Date: 20080703
  Serious: Yes (Other)
  Sender: FDA-Public Use
  Company Number: GB-ASTRAZENECA-2008GB00498

PATIENT
  Age: 61 Year
  Sex: Female

DRUGS (3)
  1. SEROQUEL [Suspect]
     Indication: BIPOLAR DISORDER
     Route: 048
  2. PREGABALIN [Concomitant]
  3. LITHIUM CARBONATE [Concomitant]

REACTIONS (1)
  - URINE OUTPUT DECREASED [None]
